FAERS Safety Report 6630300-6 (Version None)
Quarter: 2010Q1

REPORT INFORMATION
  Report Type: 
  Country: None (occurrence: None)
  Receive Date: 20100311
  Receipt Date: 20100301
  Transmission Date: 20100710
  Serious: Yes (Hospitalization)
  Sender: FDA-Public Use
  Company Number: PHHY2010US13331

PATIENT
  Sex: Female

DRUGS (3)
  1. MYFORTIC [Suspect]
     Indication: RENAL TRANSPLANT
     Dosage: 360 MG, BID
     Route: 048
     Dates: start: 20080101
  2. MYFORTIC [Suspect]
     Indication: LIVER TRANSPLANT
  3. PROGRAF [Concomitant]

REACTIONS (4)
  - ASTHENIA [None]
  - CYSTITIS [None]
  - FALL [None]
  - INFECTION [None]
